FAERS Safety Report 10257815 (Version 4)
Quarter: 2014Q4

REPORT INFORMATION
  Report Type: Spontaneous
  Country: IT (occurrence: IT)
  Receive Date: 20140625
  Receipt Date: 20141028
  Transmission Date: 20150528
  Serious: Yes (Other)
  Sender: FDA-Public Use
  Company Number: IT-MERCK-1406ITA010793

PATIENT
  Age: 77 Year
  Sex: Female
  Weight: 74 kg

DRUGS (3)
  1. PEGINTRON [Suspect]
     Active Substance: PEGINTERFERON ALFA-2B
     Indication: HEPATIC CIRRHOSIS
     Dosage: 50 MICROGRAM, WEEKLY, QW
     Route: 058
     Dates: start: 20131113, end: 20140613
  2. VICTRELIS [Interacting]
     Active Substance: BOCEPREVIR
     Indication: HEPATIC CIRRHOSIS
     Dosage: TOTAL DAILY DOSE 2400 MG
     Route: 048
     Dates: start: 20131210, end: 20140613
  3. REBETOL [Interacting]
     Active Substance: RIBAVIRIN
     Indication: HEPATIC CIRRHOSIS
     Dosage: TOTAL DAILY DOSE: 200MG
     Route: 048
     Dates: start: 20131113, end: 20140613

REACTIONS (2)
  - Cognitive disorder [Recovering/Resolving]
  - Anaemia [Recovering/Resolving]

NARRATIVE: CASE EVENT DATE: 20140613
